FAERS Safety Report 12609405 (Version 1)
Quarter: 2016Q3

REPORT INFORMATION
  Report Type: Spontaneous
  Country: US (occurrence: US)
  Receive Date: 20160801
  Receipt Date: 20160801
  Transmission Date: 20161109
  Serious: Yes (Other)
  Sender: FDA-Public Use
  Company Number: US-BRISTOL-MYERS SQUIBB COMPANY-BMS-2016-061479

PATIENT
  Age: 14 Year
  Sex: Male

DRUGS (3)
  1. ATOMOXETINE [Suspect]
     Active Substance: ATOMOXETINE
     Indication: MOVEMENT DISORDER
     Route: 065
  2. METHYLPHENIDATE. [Suspect]
     Active Substance: METHYLPHENIDATE
     Indication: MOVEMENT DISORDER
     Route: 065
  3. ABILIFY [Suspect]
     Active Substance: ARIPIPRAZOLE
     Indication: MOVEMENT DISORDER
     Route: 065

REACTIONS (3)
  - Drug ineffective [Unknown]
  - Product use issue [Unknown]
  - Parkinson^s disease [Unknown]
